FAERS Safety Report 20795175 (Version 1)
Quarter: 2022Q2

REPORT INFORMATION
  Report Type: Report from Study
  Country: AT (occurrence: AT)
  Receive Date: 20220506
  Receipt Date: 20220506
  Transmission Date: 20220721
  Serious: Yes (Death)
  Sender: FDA-Public Use
  Company Number: AT-PFIZER INC-202200641941

PATIENT

DRUGS (1)
  1. ESTRAMUSTINE PHOSPHATE [Suspect]
     Active Substance: ESTRAMUSTINE PHOSPHATE
     Indication: Hormone-refractory prostate cancer
     Dosage: 840 MG, DAILY
     Route: 048

REACTIONS (1)
  - Liver injury [Fatal]
